FAERS Safety Report 4724351-6 (Version None)
Quarter: 2005Q3

REPORT INFORMATION
  Report Type: 
  Country: None (occurrence: None)
  Receive Date: 20050721
  Receipt Date: 20050713
  Transmission Date: 20060218
  Serious: Yes (Death, Life-Threatening, Hospitalization)
  Sender: FDA-Public Use
  Company Number: 2005EU000820

PATIENT
  Age: 54 Year
  Sex: Male

DRUGS (9)
  1. TACROLIMUS CAP/INJ (TACROLIMUS CAPSULES)CAPSULE [Suspect]
     Indication: LIVER TRANSPLANT
     Dosage: 5.00 MG, UID/QD, ORAL
     Route: 048
     Dates: start: 20050326, end: 20050326
  2. TACROLIMUS CAP/INJ (TACROLIMUS CAPSULES)CAPSULE [Suspect]
     Indication: LIVER TRANSPLANT
     Dosage: 5.00 MG, UID/QD, ORAL
     Route: 048
     Dates: start: 20050327, end: 20050601
  3. MYCOPHENOLATE MOFETIL (MYCOPHENOLATE MOFETIL) [Suspect]
     Indication: LIVER TRANSPLANT
     Dosage: 1000.00 MG, BID
     Dates: start: 20050326, end: 20050407
  4. HYDROCORTISONE [Suspect]
     Indication: LIVER TRANSPLANT
     Dosage: 100.00 MG, BID
     Dates: start: 20050326
  5. PREDNISONE [Suspect]
     Indication: LIVER TRANSPLANT
     Dosage: 10.00 MG, UID/QD
     Dates: start: 20050327, end: 20050419
  6. PROPOFOL [Concomitant]
  7. AMITRIPTYLINE HCL [Concomitant]
  8. LANSOPRAZOLE [Concomitant]
  9. PARACETAMOL [Concomitant]

REACTIONS (11)
  - ABDOMINAL SEPSIS [None]
  - COLLAPSE OF LUNG [None]
  - DISEASE RECURRENCE [None]
  - DRUG TOXICITY [None]
  - MULTI-ORGAN FAILURE [None]
  - PERITONITIS [None]
  - PLEURAL EFFUSION [None]
  - POST PROCEDURAL HAEMORRHAGE [None]
  - RECTAL HAEMORRHAGE [None]
  - RENAL FAILURE ACUTE [None]
  - RESPIRATORY DISTRESS [None]
